FAERS Safety Report 19816621 (Version 1)
Quarter: 2021Q3

REPORT INFORMATION
  Report Type: Spontaneous
  Country: US (occurrence: US)
  Receive Date: 20210910
  Receipt Date: 20210910
  Transmission Date: 20211014
  Serious: No
  Sender: FDA-Public Use
  Company Number: US-SA-2021SA294898

PATIENT
  Sex: Male

DRUGS (12)
  1. ZYRTEC [Concomitant]
     Active Substance: CETIRIZINE HYDROCHLORIDE
  2. FLUOROMETHOLONE. [Concomitant]
     Active Substance: FLUOROMETHOLONE
  3. KETOTIFEN FUMARATE. [Concomitant]
     Active Substance: KETOTIFEN FUMARATE
  4. FISH OIL [Concomitant]
     Active Substance: FISH OIL
  5. PIMECROLIMUS. [Concomitant]
     Active Substance: PIMECROLIMUS
  6. GINSENG [PANAX GINSENG] [Concomitant]
  7. FLONASE SENSIMIST ALLERGY RELIEF [Concomitant]
     Active Substance: FLUTICASONE FUROATE
  8. PREDNISOLONE ACETATE. [Concomitant]
     Active Substance: PREDNISOLONE ACETATE
  9. DUPIXENT [Suspect]
     Active Substance: DUPILUMAB
     Indication: DERMATITIS ATOPIC
     Dosage: 1X
     Route: 058
     Dates: start: 20210618, end: 20210618
  10. TIMOLOL MALEATE. [Concomitant]
     Active Substance: TIMOLOL MALEATE
  11. TACROLIMUS. [Concomitant]
     Active Substance: TACROLIMUS
  12. DUPIXENT [Suspect]
     Active Substance: DUPILUMAB
     Dosage: 300 MG, QOW
     Route: 058
     Dates: start: 2021

REACTIONS (2)
  - Product dose omission issue [Unknown]
  - Eczema [Unknown]

NARRATIVE: CASE EVENT DATE: 2021
